FAERS Safety Report 5430645-1 (Version None)
Quarter: 2007Q3

REPORT INFORMATION
  Report Type: 
  Country: None (occurrence: None)
  Receive Date: 20070830
  Receipt Date: 20070822
  Transmission Date: 20080115
  Serious: Yes (Death, Hospitalization, Other)
  Sender: FDA-Public Use
  Company Number: JP-JNJFOC-20070506850

PATIENT
  Sex: Female
  Weight: 44 kg

DRUGS (12)
  1. REMICADE [Suspect]
     Route: 042
  2. REMICADE [Suspect]
     Route: 042
  3. REMICADE [Suspect]
     Route: 042
  4. REMICADE [Suspect]
     Route: 042
  5. REMICADE [Suspect]
     Indication: RHEUMATOID ARTHRITIS
     Route: 042
  6. METHOTREXATE [Suspect]
     Route: 048
  7. METHOTREXATE [Suspect]
     Route: 048
  8. METHOTREXATE [Suspect]
     Route: 048
  9. METHOTREXATE [Suspect]
     Indication: RHEUMATOID ARTHRITIS
     Route: 048
  10. FAMOTIDINE [Suspect]
     Indication: DRUG USE FOR UNKNOWN INDICATION
  11. ADRENAL HORMONE PREPARATION [Concomitant]
     Indication: RHEUMATOID ARTHRITIS
  12. LEUCOVORIN CALCIUM [Concomitant]

REACTIONS (6)
  - CARDIAC FAILURE [None]
  - DEATH [None]
  - GASTROENTERITIS STAPHYLOCOCCAL [None]
  - HEPATIC FUNCTION ABNORMAL [None]
  - PANCYTOPENIA [None]
  - PNEUMONIA [None]
